FAERS Safety Report 7982228-7 (Version None)
Quarter: 2011Q4

REPORT INFORMATION
  Report Type: 
  Country: None (occurrence: None)
  Receive Date: 20111215
  Receipt Date: 20111215
  Transmission Date: 20120403
  Serious: Yes (Life-Threatening)
  Sender: FDA-Public Use
  Company Number: None

PATIENT
  Age: 42 Year
  Sex: Male
  Weight: 86.182 kg

DRUGS (6)
  1. INVEGA [Concomitant]
     Route: 048
  2. LAMICTAL [Concomitant]
     Route: 048
  3. LITHIUM [Concomitant]
     Route: 048
  4. CEFADROXIL [Concomitant]
     Route: 048
  5. VIIBRYD [Suspect]
     Indication: MAJOR DEPRESSION
     Dates: start: 20111019, end: 20111214
  6. AMBIEN [Concomitant]
     Route: 048

REACTIONS (3)
  - ACCIDENT [None]
  - PSYCHOTIC DISORDER [None]
  - DELIRIUM [None]
